FAERS Safety Report 26194009 (Version 1)
Quarter: 2025Q4

REPORT INFORMATION
  Report Type: Spontaneous
  Country: AU (occurrence: AU)
  Receive Date: 20251224
  Receipt Date: 20251224
  Transmission Date: 20260117
  Serious: Yes (Other)
  Sender: Haleon PLC
  Company Number: AU-HALEON-2280816

PATIENT
  Sex: Female

DRUGS (1)
  1. NICOTINELL [Suspect]
     Active Substance: NICOTINE
     Indication: Product used for unknown indication

REACTIONS (5)
  - Gastrointestinal disorder [Unknown]
  - Overdose [Unknown]
  - Wrong technique in product usage process [Unknown]
  - Skin reaction [Unknown]
  - Product use issue [Unknown]
